FAERS Safety Report 9014821 (Version 1)
Quarter: 2013Q1

REPORT INFORMATION
  Report Type: Report from Study
  Country: JP (occurrence: JP)
  Receive Date: 20130116
  Receipt Date: 20130116
  Transmission Date: 20140127
  Serious: Yes (Other)
  Sender: FDA-Public Use
  Company Number: JP-009507513-1301JPN005675

PATIENT
  Age: 62 Year
  Sex: Male
  Weight: 65 kg

DRUGS (9)
  1. PEGINTRON [Suspect]
     Indication: CHRONIC HEPATITIS C
     Dosage: 1.5 MG/KG, QW
     Route: 058
     Dates: start: 20120313, end: 20120402
  2. PEGINTRON [Suspect]
     Dosage: 1.2 MG/KG, QW
     Route: 058
     Dates: start: 20120403, end: 20120626
  3. PEGINTRON [Suspect]
     Dosage: 0.75 MG/KG, ONCE
     Route: 058
     Dates: start: 20120703, end: 20120703
  4. REBETOL [Suspect]
     Indication: CHRONIC HEPATITIS C
     Dosage: 600 MG, QD
     Route: 048
     Dates: start: 20120313, end: 20120717
  5. TELAVIC [Suspect]
     Indication: CHRONIC HEPATITIS C
     Dosage: 2250 MG, QD
     Route: 048
     Dates: start: 20120313, end: 20120403
  6. TELAVIC [Suspect]
     Dosage: 1500 MG, QD
     Route: 048
     Dates: start: 20120404, end: 20120605
  7. RISPERDAL [Concomitant]
     Indication: DEPRESSION
     Dosage: 1 MG, QD
     Route: 048
  8. SILECE [Concomitant]
     Indication: DEPRESSION
     Dosage: 1 MG, QD
     Route: 048
  9. KENALOG [Concomitant]
     Indication: ORAL LICHEN PLANUS
     Dosage: UNK
     Route: 061
     Dates: end: 20120731

REACTIONS (2)
  - Stomatitis [Not Recovered/Not Resolved]
  - Depression [Recovered/Resolved]
